FAERS Safety Report 13063645 (Version 3)
Quarter: 2017Q1

REPORT INFORMATION
  Report Type: Spontaneous
  Country: US (occurrence: US)
  Receive Date: 20161227
  Receipt Date: 20170331
  Transmission Date: 20170428
  Serious: No
  Sender: FDA-Public Use
  Company Number: US-PFIZER INC-2016580852

PATIENT
  Age: 83 Year
  Sex: Female
  Weight: 49.89 kg

DRUGS (3)
  1. ADVIL [Suspect]
     Active Substance: IBUPROFEN
     Indication: PAIN
  2. METHOCARBAMOL. [Suspect]
     Active Substance: METHOCARBAMOL
     Indication: MUSCLE RELAXANT THERAPY
     Dosage: 250 MG, UNK(500MG - 1/2 A TABLET BY MOUTH)
     Route: 048
     Dates: start: 20161128
  3. ADVIL [Suspect]
     Active Substance: IBUPROFEN
     Indication: HEADACHE
     Dosage: 200 MG, 2 DF
     Dates: start: 20161128

REACTIONS (2)
  - Abdominal pain [Unknown]
  - Feeling abnormal [Unknown]
